FAERS Safety Report 4650017-7 (Version None)
Quarter: 2005Q2

REPORT INFORMATION
  Report Type: 
  Country: None (occurrence: None)
  Receive Date: 20050502
  Receipt Date: 20050421
  Transmission Date: 20051028
  Serious: Yes (Disabling, Other)
  Sender: FDA-Public Use
  Company Number: GB-JNJFOC-20050405622

PATIENT
  Age: 13 Year
  Sex: Male
  Weight: 76 kg

DRUGS (2)
  1. RISPERDAL [Suspect]
     Indication: BIPOLAR DISORDER
     Route: 049
     Dates: start: 20041026
  2. ACETAMINOPHEN [Interacting]
     Indication: DRUG USE FOR UNKNOWN INDICATION
     Route: 065

REACTIONS (4)
  - AGGRESSION [None]
  - AMNESIA [None]
  - DISORIENTATION [None]
  - DRUG INTERACTION [None]
